FAERS Safety Report 12808134 (Version 3)
Quarter: 2017Q1

REPORT INFORMATION
  Report Type: Spontaneous
  Country: US (occurrence: US)
  Receive Date: 20161004
  Receipt Date: 20170106
  Transmission Date: 20170428
  Serious: Yes (Disabling)
  Sender: FDA-Public Use
  Company Number: US-PFIZER INC-2016462499

PATIENT
  Age: 58 Year
  Sex: Female

DRUGS (1)
  1. RELPAX [Suspect]
     Active Substance: ELETRIPTAN HYDROBROMIDE
     Dosage: UNK

REACTIONS (10)
  - Mobility decreased [Unknown]
  - Meningitis viral [Unknown]
  - Condition aggravated [Unknown]
  - Migraine [Unknown]
  - Back pain [Unknown]
  - Neuropathy peripheral [Unknown]
  - Neck pain [Unknown]
  - Spondylitis [Unknown]
  - Pain [Unknown]
  - Musculoskeletal pain [Unknown]
